FAERS Safety Report 6028133-7 (Version None)
Quarter: 2009Q1

REPORT INFORMATION
  Report Type: 
  Country: None (occurrence: None)
  Receive Date: 20090105
  Receipt Date: 20090105
  Transmission Date: 20090719
  Serious: No
  Sender: FDA-Public Use
  Company Number: None

PATIENT
  Age: 20 Year
  Sex: Female

DRUGS (1)
  1. MIRENA [Suspect]

REACTIONS (5)
  - DEPRESSION [None]
  - HEADACHE [None]
  - MOOD SWINGS [None]
  - TACHYCARDIA [None]
  - WEIGHT INCREASED [None]
